FAERS Safety Report 4715510-7 (Version None)
Quarter: 2005Q3

REPORT INFORMATION
  Report Type: 
  Country: None (occurrence: None)
  Receive Date: 20050713
  Receipt Date: 20050706
  Transmission Date: 20060218
  Serious: Yes (Other)
  Sender: FDA-Public Use
  Company Number: 215499

PATIENT
  Age: 80 Year
  Sex: Female

DRUGS (4)
  1. AVASTIN [Suspect]
     Indication: COLORECTAL CANCER METASTATIC
     Dosage: 100 MG/KG
  2. 5FU (FLUOROURACIL) [Concomitant]
  3. LEUCOVORIN CALCIUM [Concomitant]
  4. CPT-11(IRINOTECAN HYDROCHLORIDE) [Concomitant]

REACTIONS (2)
  - METASTASES TO LIVER [None]
  - METASTASES TO LUNG [None]
